FAERS Safety Report 5093453-X (Version None)
Quarter: 2006Q3

REPORT INFORMATION
  Report Type: 
  Country: None (occurrence: None)
  Receive Date: 20060828
  Receipt Date: 20060817
  Transmission Date: 20061208
  Serious: Yes (Hospitalization)
  Sender: FDA-Public Use
  Company Number: 2006-DE-04310GD

PATIENT
  Age: 27 Year
  Sex: Male

DRUGS (11)
  1. MORPHINE [Suspect]
     Indication: PAIN PROPHYLAXIS
     Dosage: SEE IMAGE
  2. MORPHINE [Suspect]
     Indication: PROCEDURAL PAIN
     Dosage: SEE IMAGE
  3. ACETAMINOPHEN [Suspect]
  4. DICLOFENAC (DICLOFENAC) [Suspect]
  5. CEFAZOLIN [Suspect]
  6. NADROPARIN (NADROPARIN) [Concomitant]
  7. LIDOCAINE [Concomitant]
  8. BUPIVACAINE [Concomitant]
  9. EPHEDRINE SUL CAP [Concomitant]
  10. MIDAZOLAM HCL [Concomitant]
  11. MANNITOL [Concomitant]

REACTIONS (7)
  - ACUTE GENERALISED EXANTHEMATOUS PUSTULOSIS [None]
  - ALANINE AMINOTRANSFERASE INCREASED [None]
  - ASPARTATE AMINOTRANSFERASE INCREASED [None]
  - LYMPHOCYTE TRANSFORMATION TEST POSITIVE [None]
  - SKIN GRAFT [None]
  - SKIN TEST POSITIVE [None]
  - TOXIC SHOCK SYNDROME [None]
